FAERS Safety Report 7388076-3 (Version None)
Quarter: 2011Q2

REPORT INFORMATION
  Report Type: 
  Country: None (occurrence: None)
  Receive Date: 20110401
  Receipt Date: 20110329
  Transmission Date: 20111010
  Serious: No
  Sender: FDA-Public Use
  Company Number: US-PFIZER INC-2011032793

PATIENT
  Sex: Male
  Weight: 78.912 kg

DRUGS (3)
  1. VIAGRA [Suspect]
     Indication: ERECTILE DYSFUNCTION
     Dosage: 50 MG, AS NEEDED, DAILY
     Route: 048
     Dates: start: 20110201, end: 20110201
  2. METOPROLOL [Concomitant]
     Indication: CORONARY ARTERY DISEASE
     Dosage: 50 MG, 2X/DAY
  3. VYTORIN [Concomitant]
     Indication: CORONARY ARTERY DISEASE
     Dosage: 10/20 DAILY

REACTIONS (1)
  - DRUG INEFFECTIVE [None]
